FAERS Safety Report 22060190 (Version 1)
Quarter: 2023Q1

REPORT INFORMATION
  Report Type: Spontaneous
  Country: US (occurrence: US)
  Receive Date: 20230303
  Receipt Date: 20230303
  Transmission Date: 20230418
  Serious: No
  Sender: FDA-Public Use
  Company Number: US-PFIZER INC-PV202300038022

PATIENT
  Age: 64 Year
  Sex: Female

DRUGS (2)
  1. IBRANCE [Interacting]
     Active Substance: PALBOCICLIB
  2. XGEVA [Interacting]
     Active Substance: DENOSUMAB

REACTIONS (4)
  - Drug interaction [Unknown]
  - Neutrophil count decreased [Unknown]
  - Hypotension [Unknown]
  - Fatigue [Unknown]
